FAERS Safety Report 6585941-1 (Version None)
Quarter: 2010Q1

REPORT INFORMATION
  Report Type: 
  Country: None (occurrence: None)
  Receive Date: 20100217
  Receipt Date: 20100210
  Transmission Date: 20100710
  Serious: Yes (Other)
  Sender: FDA-Public Use
  Company Number: BR-ABBOTT-09P-020-0614077-00

PATIENT
  Sex: Female
  Weight: 83 kg

DRUGS (16)
  1. HUMIRA [Suspect]
     Indication: RHEUMATOID ARTHRITIS
     Route: 058
     Dates: start: 20050101
  2. METHOTREXATE [Suspect]
     Indication: RHEUMATOID ARTHRITIS
     Route: 048
     Dates: start: 20090101
  3. LEFLUNOMIDE [Concomitant]
     Indication: RHEUMATOID ARTHRITIS
     Route: 048
  4. ALENDRONATE SODIUM [Concomitant]
     Indication: OSTEOPOROSIS
     Route: 048
  5. ALENDRONATE SODIUM [Concomitant]
     Indication: BONE DISORDER
  6. OMEPRAZOLE [Concomitant]
     Indication: PROPHYLAXIS AGAINST GASTROINTESTINAL ULCER
     Route: 048
  7. ESLENSIG (?) [Concomitant]
     Indication: WEIGHT DECREASED
     Route: 048
     Dates: start: 20091001
  8. FOLIC ACID [Concomitant]
     Indication: PROPHYLAXIS
     Route: 048
  9. FOLIC ACID [Concomitant]
     Indication: CHEILITIS
  10. FOLIC ACID [Concomitant]
  11. CHLORTHALIDONE [Concomitant]
     Indication: DIURETIC THERAPY
     Route: 048
  12. CALTRATE 600 + D [Concomitant]
     Indication: BONE DISORDER
     Route: 048
  13. BETASERC [Concomitant]
     Indication: LABYRINTHITIS
     Route: 048
  14. METICORTEN [Concomitant]
     Indication: PAIN
     Route: 048
  15. MULTIVITAMIN [Concomitant]
     Indication: EYE DISORDER
     Route: 048
  16. CARDIZEM [Concomitant]
     Indication: DRUG USE FOR UNKNOWN INDICATION

REACTIONS (8)
  - ARTHRALGIA [None]
  - CHEILITIS [None]
  - GLUCOSE TOLERANCE TEST ABNORMAL [None]
  - HYPERTENSION [None]
  - INFLAMMATION [None]
  - MASS [None]
  - OSTEOPOROSIS [None]
  - PAIN [None]
